FAERS Safety Report 15678144 (Version 1)
Quarter: 2018Q4

REPORT INFORMATION
  Report Type: Spontaneous
  Country: CN (occurrence: CN)
  Receive Date: 20181201
  Receipt Date: 20181201
  Transmission Date: 20190205
  Serious: Yes (Hospitalization)
  Sender: FDA-Public Use
  Company Number: CN-ROCHE-2222593

PATIENT
  Age: 59 Year
  Sex: Female
  Weight: 72 kg

DRUGS (1)
  1. HERCEPTIN [Suspect]
     Active Substance: TRASTUZUMAB
     Indication: BREAST CANCER IN SITU
     Route: 065
     Dates: start: 20180919

REACTIONS (1)
  - Anaphylactoid reaction [Recovered/Resolved]

NARRATIVE: CASE EVENT DATE: 20180919
